FAERS Safety Report 4920092-0 (Version None)
Quarter: 2006Q1

REPORT INFORMATION
  Report Type: 
  Country: None (occurrence: None)
  Receive Date: 20060216
  Receipt Date: 20060201
  Transmission Date: 20060701
  Serious: Yes (Other)
  Sender: FDA-Public Use
  Company Number: 2006BL000636

PATIENT
  Age: 60 Year
  Sex: Female

DRUGS (1)
  1. CARTEOLOL HYDROCHLORIDE [Suspect]
     Indication: GLAUCOMA
     Dosage: OPHTHALMIC
     Route: 047
     Dates: start: 19900101

REACTIONS (5)
  - BACTERIAL INFECTION [None]
  - CATARACT OPERATION [None]
  - CORNEAL DISORDER [None]
  - DRUG TOLERANCE DECREASED [None]
  - EYE PAIN [None]
